FAERS Safety Report 5120766-5 (Version None)
Quarter: 2006Q4

REPORT INFORMATION
  Report Type: 
  Country: None (occurrence: None)
  Receive Date: 20061003
  Receipt Date: 20061003
  Transmission Date: 20070319
  Serious: Yes (Disabling)
  Sender: FDA-Public Use
  Company Number: None

PATIENT
  Age: 83 Year
  Sex: Male
  Weight: 104.5 kg

DRUGS (2)
  1. CARBAMAZEPINE [Suspect]
     Indication: CONVULSION
     Dosage: 200 MG BID PO
     Route: 048
     Dates: start: 20060817, end: 20060829
  2. CARBAMAZEPINE [Suspect]
     Indication: CONVULSION
     Dosage: 300 MG HS PO
     Route: 048
     Dates: start: 20060817, end: 20060829

REACTIONS (1)
  - BRADYCARDIA [None]
